FAERS Safety Report 5595970-2 (Version None)
Quarter: 2008Q1

REPORT INFORMATION
  Report Type: 
  Country: None (occurrence: None)
  Receive Date: 20080118
  Receipt Date: 20080115
  Transmission Date: 20080703
  Serious: Yes (Death, Hospitalization, Other)
  Sender: FDA-Public Use
  Company Number: US-ASTRAZENECA-2006UW27636

PATIENT
  Age: 19059 Day
  Sex: Female
  Weight: 75 kg

DRUGS (15)
  1. SEROQUEL [Suspect]
     Indication: DEPRESSION
     Route: 048
     Dates: start: 19990130, end: 20010901
  2. SEROQUEL [Suspect]
     Route: 048
     Dates: start: 20010901, end: 20050824
  3. ZYPREXA [Concomitant]
     Route: 048
     Dates: start: 20001221
  4. AMBIEN [Concomitant]
     Route: 048
     Dates: start: 20010323
  5. WELLBUTRIN [Concomitant]
     Route: 048
     Dates: start: 20020503
  6. TRAZODONE HCL [Concomitant]
     Route: 048
     Dates: start: 19980708
  7. PREDNISONE [Concomitant]
     Route: 048
     Dates: start: 19990902
  8. PREDNISONE [Concomitant]
     Route: 048
     Dates: start: 20010203
  9. PREDNISONE [Concomitant]
     Route: 048
     Dates: start: 20011026
  10. CELEBREX [Concomitant]
     Route: 048
     Dates: start: 20030922
  11. PLAVIX [Concomitant]
     Route: 048
     Dates: start: 20051123
  12. EFFEXOR [Concomitant]
     Route: 048
     Dates: start: 20051216
  13. LEXAPRO [Concomitant]
     Route: 048
     Dates: start: 20061118
  14. SERTRALINE [Concomitant]
     Route: 048
     Dates: start: 20070407
  15. ZOCOR [Concomitant]
     Route: 048

REACTIONS (15)
  - ASTHENIA [None]
  - ASTHMA [None]
  - BLOOD CHOLESTEROL INCREASED [None]
  - CORONARY ARTERIAL STENT INSERTION [None]
  - DEATH [None]
  - DIABETES MELLITUS [None]
  - HYPERGLYCAEMIA [None]
  - HYPERLIPIDAEMIA [None]
  - HYPOAESTHESIA [None]
  - INTERMITTENT CLAUDICATION [None]
  - MENINGITIS VIRAL [None]
  - PAIN IN EXTREMITY [None]
  - PANCREATITIS [None]
  - PNEUMONIA [None]
  - TYPE 2 DIABETES MELLITUS [None]
